FAERS Safety Report 5122290-2 (Version None)
Quarter: 2006Q4

REPORT INFORMATION
  Report Type: 
  Country: None (occurrence: None)
  Receive Date: 20061003
  Receipt Date: 20060928
  Transmission Date: 20070319
  Serious: Yes (Other)
  Sender: FDA-Public Use
  Company Number: 2006S1008118

PATIENT
  Age: 52 Year
  Sex: Male

DRUGS (6)
  1. EXTENDED PHENYTOIN SODIUM [Suspect]
     Indication: EPILEPSY
     Dosage: SEE IMAGE
     Route: 048
     Dates: start: 20060606
  2. EXTENDED PHENYTOIN SODIUM [Suspect]
     Indication: EPILEPSY
     Dosage: SEE IMAGE
     Route: 048
     Dates: start: 20060620
  3. CLOPIDOGREL [Concomitant]
  4. VALSARTAN [Concomitant]
  5. PANTOPRAZOLE SODIUM [Concomitant]
  6. SALBUTAMOL [Concomitant]

REACTIONS (6)
  - ANTICONVULSANT DRUG LEVEL DECREASED [None]
  - CONDITION AGGRAVATED [None]
  - CONVULSION [None]
  - GRAND MAL CONVULSION [None]
  - MEDICATION TAMPERING [None]
  - PHARMACEUTICAL PRODUCT COMPLAINT [None]
